FAERS Safety Report 13564784 (Version 2)
Quarter: 2017Q2

REPORT INFORMATION
  Report Type: Spontaneous
  Country: DE (occurrence: DE)
  Receive Date: 20170519
  Receipt Date: 20170601
  Transmission Date: 20170830
  Serious: Yes (Hospitalization)
  Sender: FDA-Public Use
  Company Number: DE-NOVOPROD-545027

PATIENT
  Age: 38 Year
  Sex: Female
  Weight: 173 kg

DRUGS (2)
  1. NOVORAPID [Suspect]
     Active Substance: INSULIN ASPART
     Dosage: DOSE INCREASED
     Route: 058
  2. NOVORAPID [Suspect]
     Active Substance: INSULIN ASPART
     Indication: TYPE 1 DIABETES MELLITUS
     Dosage: UNK
     Route: 058
     Dates: start: 20170323

REACTIONS (3)
  - Product leakage [Unknown]
  - Diabetic ketoacidosis [Unknown]
  - Product container issue [Unknown]

NARRATIVE: CASE EVENT DATE: 20170425
